FAERS Safety Report 11046555 (Version 1)
Quarter: 2015Q2

REPORT INFORMATION
  Report Type: Spontaneous
  Country: US (occurrence: US)
  Receive Date: 20150420
  Receipt Date: 20150420
  Transmission Date: 20150821
  Serious: Yes (Other)
  Sender: FDA-Public Use
  Company Number: US-TEVA-542781USA

PATIENT
  Sex: Male

DRUGS (1)
  1. PRAVASTATIN [Suspect]
     Active Substance: PRAVASTATIN\PRAVASTATIN SODIUM

REACTIONS (2)
  - Fungal infection [Unknown]
  - Rhabdomyolysis [Unknown]
